FAERS Safety Report 7206335-1 (Version None)
Quarter: 2011Q1

REPORT INFORMATION
  Report Type: 
  Country: None (occurrence: None)
  Receive Date: 20110103
  Receipt Date: 20110103
  Transmission Date: 20110831
  Serious: Yes (Hospitalization)
  Sender: FDA-Public Use
  Company Number: PHHO2008FR13157

PATIENT
  Sex: Male

DRUGS (4)
  1. SANDOSTATIN LAR [Suspect]
     Indication: CARCINOID TUMOUR
  2. TROSPIUM CHLORIDE (CERIS) [Concomitant]
  3. LOPERAMIDE HCL [Concomitant]
  4. PLACEBO [Suspect]
     Indication: CARCINOID TUMOUR
     Dosage: PLACEBO
     Route: 048
     Dates: start: 20080207, end: 20081112

REACTIONS (6)
  - ABDOMINAL PAIN [None]
  - SEPSIS [None]
  - COLITIS [None]
  - DIARRHOEA [None]
  - CANDIDIASIS [None]
  - STAPHYLOCOCCAL INFECTION [None]
